FAERS Safety Report 20201827 (Version 2)
Quarter: 2021Q4

REPORT INFORMATION
  Report Type: Spontaneous
  Country: FR (occurrence: FR)
  Receive Date: 20211217
  Receipt Date: 20211230
  Transmission Date: 20220303
  Serious: Yes (Death)
  Sender: FDA-Public Use
  Company Number: None

PATIENT
  Age: 53 Year
  Sex: Male

DRUGS (7)
  1. CISPLATIN [Suspect]
     Active Substance: CISPLATIN
     Indication: Neoplasm malignant
     Dosage: 75 MG/M2
     Route: 042
     Dates: start: 20210824, end: 20210824
  2. LANSOPRAZOLE [Suspect]
     Active Substance: LANSOPRAZOLE
     Indication: Product used for unknown indication
     Dosage: 30 MG
     Route: 048
     Dates: start: 20210827, end: 20210915
  3. POLYETHYLENE GLYCOLS [Suspect]
     Active Substance: POLYETHYLENE GLYCOLS
     Indication: Constipation
     Dosage: 11.8 GRAM
     Route: 048
     Dates: start: 20210825, end: 20210906
  4. GEMCITABINE [Suspect]
     Active Substance: GEMCITABINE
     Indication: Neoplasm malignant
     Dosage: 1650 MG
     Route: 042
     Dates: start: 20210824, end: 20210831
  5. LOVENOX [Suspect]
     Active Substance: ENOXAPARIN SODIUM
     Indication: Thrombosis prophylaxis
     Dosage: 1 DF, LOVENOX 4000 IU ANTI-XA / 0.4 ML
     Route: 058
     Dates: start: 20210821, end: 20210917
  6. OXAZEPAM [Suspect]
     Active Substance: OXAZEPAM
     Indication: Agitation
     Dosage: 10 MG
     Route: 048
     Dates: start: 20210825, end: 20210914
  7. BACLOFEN [Concomitant]
     Active Substance: BACLOFEN
     Dosage: 10 MG, THERAPY START DATE: ASKU
     Route: 048
     Dates: end: 20210917

REACTIONS (1)
  - Thrombotic microangiopathy [Fatal]

NARRATIVE: CASE EVENT DATE: 20210829
